FAERS Safety Report 7965485-2 (Version None)
Quarter: 2011Q4

REPORT INFORMATION
  Report Type: 
  Country: None (occurrence: None)
  Receive Date: 20111208
  Receipt Date: 20111130
  Transmission Date: 20120403
  Serious: Yes (Other)
  Sender: FDA-Public Use
  Company Number: US-JNJFOC-20111200711

PATIENT
  Sex: Female

DRUGS (3)
  1. XARELTO [Suspect]
     Indication: ILL-DEFINED DISORDER
     Route: 065
     Dates: start: 20111101, end: 20111101
  2. FLECAINIDE ACETATE [Suspect]
     Indication: ILL-DEFINED DISORDER
  3. UNKNOWN MEDICATION [Concomitant]
     Indication: ILL-DEFINED DISORDER

REACTIONS (1)
  - ANGIOEDEMA [None]
